FAERS Safety Report 19827947 (Version 2)
Quarter: 2021Q3

REPORT INFORMATION
  Report Type: Other
  Country: US (occurrence: US)
  Receive Date: 20210914
  Receipt Date: 20210917
  Transmission Date: 20211014
  Serious: No
  Sender: FDA-Public Use
  Company Number: US-ROCHE-2906216

PATIENT
  Age: 64 Year
  Sex: Male

DRUGS (1)
  1. OCREVUS [Suspect]
     Active Substance: OCRELIZUMAB
     Indication: SECONDARY PROGRESSIVE MULTIPLE SCLEROSIS
     Dosage: ONGOING NO, DATE OF TREATMENT 2020?07?10, 2020?12?10, 30?JAN?2020, 29?JUN?2020
     Route: 065
     Dates: start: 20170928, end: 20201210

REACTIONS (5)
  - B-lymphocyte count decreased [Unknown]
  - Antibody test negative [Unknown]
  - Magnetic resonance imaging abnormal [Not Recovered/Not Resolved]
  - Fatigue [Unknown]
  - COVID-19 [Recovered/Resolved]

NARRATIVE: CASE EVENT DATE: 2020
